FAERS Safety Report 10269672 (Version 1)
Quarter: 2014Q2

REPORT INFORMATION
  Report Type: Spontaneous
  Country: US (occurrence: None)
  Receive Date: 20140609
  Receipt Date: 20140609
  Transmission Date: 20141212
  Serious: Yes (Other)
  Sender: FDA-Public Use
  Company Number: A14-038 A

PATIENT
  Age: 12 Year
  Sex: Female
  Weight: 52.7 kg

DRUGS (6)
  1. ALLERGENIC EXTRACT [Suspect]
     Dosage: .25CC, MAINT, INJECTION
     Dates: start: 20140507
  2. ALLERGENIC EXTRACT [Suspect]
     Dosage: .25CC, MAINT, INJECTION
     Dates: start: 20140507
  3. ALLERGENIC EXTRACT [Suspect]
  4. ZYRTEC [Concomitant]
  5. FLONASE [Concomitant]
  6. ALBUTEROL MDI [Concomitant]

REACTIONS (3)
  - Throat irritation [None]
  - Cough [None]
  - Wheezing [None]
